FAERS Safety Report 4976463-X (Version None)
Quarter: 2006Q2

REPORT INFORMATION
  Report Type: 
  Country: None (occurrence: None)
  Receive Date: 20060412
  Receipt Date: 20060331
  Transmission Date: 20061013
  Serious: Yes (Death)
  Sender: FDA-Public Use
  Company Number: ITWYE498122MAR06

PATIENT
  Sex: Male

DRUGS (1)
  1. FAXINE (VENLAFAXINE HYDROCHLORIDE) [Suspect]
     Route: 048
     Dates: start: 20060201, end: 20060201

REACTIONS (1)
  - DEATH [None]
